FAERS Safety Report 19178239 (Version 1)
Quarter: 2021Q2

REPORT INFORMATION
  Report Type: Spontaneous
  Country: DE (occurrence: DE)
  Receive Date: 20210426
  Receipt Date: 20210426
  Transmission Date: 20210717
  Serious: Yes (Hospitalization)
  Sender: FDA-Public Use
  Company Number: DE-TEVA-2021-DE-1903520

PATIENT
  Age: 59 Year
  Sex: Male

DRUGS (11)
  1. CISPLATIN. [Suspect]
     Active Substance: CISPLATIN
     Dosage: 45 MG, LAST ON 02022021
     Route: 065
  2. PHENPROCOUMON [Concomitant]
     Active Substance: PHENPROCOUMON
     Dosage: 3 MG,
  3. METFORMIN [Concomitant]
     Active Substance: METFORMIN HYDROCHLORIDE
     Dosage: 2000 MILLIGRAM DAILY; 1?0?1?0
  4. VIANI 50 UG/250 UG DISKUS [Concomitant]
     Dosage: 2 DOSAGE FORMS DAILY; 250 | 50 UG, 1?0?1?0
     Route: 055
  5. HYDROCHLOROTHIAZID [Concomitant]
     Active Substance: HYDROCHLOROTHIAZIDE
     Dosage: 25 MILLIGRAM DAILY; 1?0?0?0
  6. ATORVASTATIN [Concomitant]
     Active Substance: ATORVASTATIN
     Dosage: 40 MILLIGRAM DAILY; 0?0?1?0
  7. SEEBRI BREEZHALER 44MIKROGRAMM [Concomitant]
     Dosage: 50 UG, 1?0?0?0
     Route: 055
  8. MOXONIDIN [Concomitant]
     Active Substance: MOXONIDINE
     Dosage: .2 MILLIGRAM DAILY; 1?0?0?0
  9. RAMIPRIL. [Concomitant]
     Active Substance: RAMIPRIL
     Dosage: 10 MILLIGRAM DAILY; 1?0?1?0
  10. AMLODIPIN [Concomitant]
     Active Substance: AMLODIPINE BESYLATE
     Dosage: 10 MILLIGRAM DAILY; 1?0?1?0
  11. BISOPROLOL [Concomitant]
     Active Substance: BISOPROLOL
     Dosage: 20 MILLIGRAM DAILY; 1?0?1?0

REACTIONS (5)
  - Fatigue [Unknown]
  - Renal failure [Unknown]
  - Renal function test abnormal [Unknown]
  - Electrolyte imbalance [Unknown]
  - Paraesthesia [Unknown]
